FAERS Safety Report 6363171-6 (Version None)
Quarter: 2009Q3

REPORT INFORMATION
  Report Type: 
  Country: None (occurrence: None)
  Receive Date: 20090919
  Receipt Date: 20090622
  Transmission Date: 20100115
  Serious: No
  Sender: FDA-Public Use
  Company Number: US-ABBOTT-09P-163-0581355-00

PATIENT
  Sex: Female
  Weight: 52.664 kg

DRUGS (4)
  1. HUMIRA [Suspect]
     Indication: CROHN'S DISEASE
     Route: 058
     Dates: start: 20090515, end: 20090515
  2. HUMIRA [Suspect]
     Route: 058
     Dates: start: 20090529, end: 20090612
  3. HUMIRA [Suspect]
  4. HUMIRA [Suspect]
     Dates: start: 20081201

REACTIONS (4)
  - CHILLS [None]
  - HEADACHE [None]
  - INCORRECT DOSE ADMINISTERED [None]
  - NIGHT SWEATS [None]
